FAERS Safety Report 5844087-8 (Version None)
Quarter: 2008Q3

REPORT INFORMATION
  Report Type: 
  Country: None (occurrence: None)
  Receive Date: 20080813
  Receipt Date: 20080805
  Transmission Date: 20090109
  Serious: Yes (Hospitalization)
  Sender: FDA-Public Use
  Company Number: US-GILEAD-2008-0017012

PATIENT
  Sex: Female

DRUGS (14)
  1. LETAIRIS [Suspect]
     Indication: PULMONARY ARTERIAL HYPERTENSION
     Route: 048
  2. NITROGLYCERIN [Concomitant]
  3. ILOPROST [Concomitant]
  4. FUROSEMIDE [Concomitant]
  5. ISOSORBIDE DINITRATE [Concomitant]
  6. DIGOXIN [Concomitant]
     Indication: PULMONARY HYPERTENSION
  7. CARVEDILOL [Concomitant]
     Indication: CORONARY ARTERY DISEASE
  8. ASPIRIN [Concomitant]
  9. LISINOPRIL [Concomitant]
  10. TIOTROPIUM [Concomitant]
  11. FLUTICASONE PROPIONATE [Concomitant]
  12. HUMULIN 70/30 [Concomitant]
     Indication: DIABETES MELLITUS
  13. INSULIN LISPRO [Concomitant]
     Indication: DIABETES MELLITUS
  14. SIMVASTATIN [Concomitant]
     Indication: HYPERCHOLESTEROLAEMIA

REACTIONS (1)
  - ANGINA PECTORIS [None]
